FAERS Safety Report 6344348-2 (Version None)
Quarter: 2009Q3

REPORT INFORMATION
  Report Type: 
  Country: None (occurrence: None)
  Receive Date: 20090903
  Receipt Date: 20090226
  Transmission Date: 20100115
  Serious: Yes (Hospitalization)
  Sender: FDA-Public Use
  Company Number: 010678951A

PATIENT
  Age: 72 Year
  Sex: Male

DRUGS (6)
  1. COLGATE TOTAL(R) ADVANCED WHITENING PASTE [Suspect]
     Indication: DENTAL PLAQUE
     Dosage: NI/4X OR MORE A DAY/ORAL
     Route: 048
  2. COLGATE TOTAL(R) ADVANCED WHITENING PASTE [Suspect]
     Indication: GINGIVITIS
     Dosage: NI/4X OR MORE A DAY/ORAL
     Route: 048
  3. FLAGYL [Concomitant]
  4. LEVAQUIN [Concomitant]
  5. SALINE [Concomitant]
  6. ^DILATA^ [Concomitant]

REACTIONS (5)
  - DYSPNOEA [None]
  - HYPERSENSITIVITY [None]
  - JAW DISORDER [None]
  - RASH MACULO-PAPULAR [None]
  - SWELLING [None]
